FAERS Safety Report 4330462-X (Version None)
Quarter: 2004Q1

REPORT INFORMATION
  Report Type: 
  Country: None (occurrence: None)
  Receive Date: 20040330
  Receipt Date: 20040316
  Transmission Date: 20041129
  Serious: Yes (Death, Life-Threatening, Hospitalization)
  Sender: FDA-Public Use
  Company Number: GB-JNJFOC-20040301168

PATIENT
  Age: 72 Year
  Sex: Female

DRUGS (7)
  1. REMICADE [Suspect]
     Indication: RHEUMATOID ARTHRITIS
     Dosage: 120 MG, INTRAVENOUS
     Route: 042
     Dates: start: 20030901, end: 20031201
  2. METHOTREXATE [Concomitant]
  3. PREDNISOLONE [Concomitant]
  4. ARTHROTEC [Concomitant]
  5. FOLIC ACID [Concomitant]
  6. ALENDRONATE (ALENDRONATE SODIUM) [Concomitant]
  7. CALCICHEW (CALCIUM CARBONATE) [Concomitant]

REACTIONS (4)
  - GASTROINTESTINAL NEOPLASM [None]
  - LUNG NEOPLASM MALIGNANT [None]
  - METASTASES TO BONE [None]
  - METASTATIC NEOPLASM [None]
